FAERS Safety Report 19456780 (Version 2)
Quarter: 2021Q3

REPORT INFORMATION
  Report Type: Spontaneous
  Country: US (occurrence: US)
  Receive Date: 20210624
  Receipt Date: 20210714
  Transmission Date: 20211014
  Serious: No
  Sender: FDA-Public Use
  Company Number: US-ASTRAZENECA-2021A493403

PATIENT
  Age: 3178 Week
  Sex: Female
  Weight: 49 kg

DRUGS (2)
  1. SYMBICORT [Suspect]
     Active Substance: BUDESONIDE\FORMOTEROL FUMARATE DIHYDRATE
     Indication: ASTHMA
     Dosage: 160/4.5 MCG, TWO PUFFS, TWICE DAILY
     Route: 055
     Dates: start: 202102
  2. SYMBICORT [Suspect]
     Active Substance: BUDESONIDE\FORMOTEROL FUMARATE DIHYDRATE
     Indication: ASTHMA
     Route: 055

REACTIONS (5)
  - Wrong technique in device usage process [Unknown]
  - Therapy change [Unknown]
  - Device use issue [Unknown]
  - Upper respiratory tract infection [Unknown]
  - Device malfunction [Unknown]

NARRATIVE: CASE EVENT DATE: 202101
